FAERS Safety Report 21830436 (Version 2)
Quarter: 2023Q1

REPORT INFORMATION
  Report Type: Spontaneous
  Country: US (occurrence: US)
  Receive Date: 20230106
  Receipt Date: 20230111
  Transmission Date: 20230418
  Serious: Yes (Hospitalization)
  Sender: FDA-Public Use
  Company Number: US-002147023-NVSC2022US303013

PATIENT
  Sex: Male

DRUGS (36)
  1. AZITHROMYCIN [Suspect]
     Active Substance: AZITHROMYCIN
     Indication: Mycobacterium avium complex infection
     Dosage: UNK
     Route: 065
  2. AZITHROMYCIN [Suspect]
     Active Substance: AZITHROMYCIN
     Indication: Lung disorder
  3. AZITHROMYCIN [Suspect]
     Active Substance: AZITHROMYCIN
     Indication: Cough
  4. AZITHROMYCIN [Suspect]
     Active Substance: AZITHROMYCIN
     Indication: Chronic obstructive pulmonary disease
  5. AZITHROMYCIN [Suspect]
     Active Substance: AZITHROMYCIN
     Indication: Infection
  6. LEVOFLOXACIN [Suspect]
     Active Substance: LEVOFLOXACIN
     Indication: Cough
     Dosage: UNK
     Route: 065
  7. LEVOFLOXACIN [Suspect]
     Active Substance: LEVOFLOXACIN
     Indication: Lung disorder
  8. LEVOFLOXACIN [Suspect]
     Active Substance: LEVOFLOXACIN
     Indication: Mycobacterium avium complex infection
  9. CLARITHROMYCIN [Suspect]
     Active Substance: CLARITHROMYCIN
     Indication: Lung disorder
     Dosage: UNK
     Route: 065
  10. CLARITHROMYCIN [Suspect]
     Active Substance: CLARITHROMYCIN
     Indication: Cough
  11. CLARITHROMYCIN [Suspect]
     Active Substance: CLARITHROMYCIN
     Indication: Mycobacterium avium complex infection
  12. MEROPENEM [Suspect]
     Active Substance: MEROPENEM
     Indication: Mycobacterium avium complex infection
     Dosage: UNK
     Route: 065
  13. MEROPENEM [Suspect]
     Active Substance: MEROPENEM
     Indication: Lung disorder
  14. MEROPENEM [Suspect]
     Active Substance: MEROPENEM
     Indication: Cough
  15. CEFEPIME [Suspect]
     Active Substance: CEFEPIME HYDROCHLORIDE
     Indication: Mycobacterium avium complex infection
     Dosage: UNK
     Route: 065
  16. CEFEPIME [Suspect]
     Active Substance: CEFEPIME HYDROCHLORIDE
     Indication: Lung disorder
  17. CEFEPIME [Suspect]
     Active Substance: CEFEPIME HYDROCHLORIDE
     Indication: Cough
  18. ETHAMBUTOL [Suspect]
     Active Substance: ETHAMBUTOL HYDROCHLORIDE
     Indication: Mycobacterium avium complex infection
     Dosage: UNK
     Route: 065
  19. ETHAMBUTOL [Suspect]
     Active Substance: ETHAMBUTOL HYDROCHLORIDE
     Indication: Lung disorder
  20. ETHAMBUTOL [Suspect]
     Active Substance: ETHAMBUTOL HYDROCHLORIDE
     Indication: Cough
  21. RIFAMPIN [Suspect]
     Active Substance: RIFAMPIN
     Indication: Cough
     Dosage: UNK
     Route: 065
  22. RIFAMPIN [Suspect]
     Active Substance: RIFAMPIN
     Indication: Lung disorder
  23. RIFAMPIN [Suspect]
     Active Substance: RIFAMPIN
     Indication: Mycobacterium avium complex infection
  24. AMIKACIN [Suspect]
     Active Substance: AMIKACIN
     Indication: Cough
     Dosage: UNK
     Route: 065
  25. AMIKACIN [Suspect]
     Active Substance: AMIKACIN
     Indication: Lung disorder
  26. AMIKACIN [Suspect]
     Active Substance: AMIKACIN
     Indication: Mycobacterium avium complex infection
  27. AMIKACIN [Suspect]
     Active Substance: AMIKACIN
     Indication: Bronchitis
  28. AMIKACIN [Suspect]
     Active Substance: AMIKACIN
     Indication: Lung disorder
  29. AMIKACIN [Suspect]
     Active Substance: AMIKACIN
     Indication: Infection
  30. ROCEPHIN [Suspect]
     Active Substance: CEFTRIAXONE SODIUM
     Indication: Lung disorder
     Dosage: UNK
     Route: 065
  31. ROCEPHIN [Suspect]
     Active Substance: CEFTRIAXONE SODIUM
     Indication: Infection
  32. ROCEPHIN [Suspect]
     Active Substance: CEFTRIAXONE SODIUM
     Indication: Bronchitis
  33. INVANZ [Suspect]
     Active Substance: ERTAPENEM SODIUM
     Indication: Mycobacterium avium complex infection
     Dosage: UNK
     Route: 065
  34. INVANZ [Suspect]
     Active Substance: ERTAPENEM SODIUM
     Indication: Lung disorder
  35. INVANZ [Suspect]
     Active Substance: ERTAPENEM SODIUM
     Indication: Infection
  36. INVANZ [Suspect]
     Active Substance: ERTAPENEM SODIUM
     Indication: Bronchitis

REACTIONS (4)
  - Pneumonia [Unknown]
  - Drug hypersensitivity [Unknown]
  - Product use in unapproved indication [Unknown]
  - Drug intolerance [Unknown]
